FAERS Safety Report 11370161 (Version 1)
Quarter: 2015Q3

REPORT INFORMATION
  Report Type: Spontaneous
  Country: IT (occurrence: IT)
  Receive Date: 20150812
  Receipt Date: 20150812
  Transmission Date: 20151125
  Serious: Yes (Other)
  Sender: FDA-Public Use
  Company Number: IT-B.I. PHARMACEUTICALS,INC./RIDGEFIELD-2015-BI-40099IT

PATIENT
  Age: 72 Year
  Sex: Female

DRUGS (3)
  1. GILOTRIF [Suspect]
     Active Substance: AFATINIB
     Indication: LUNG ADENOCARCINOMA
  2. GILOTRIF [Suspect]
     Active Substance: AFATINIB
     Indication: LUNG ADENOCARCINOMA METASTATIC
     Route: 048
  3. GILOTRIF [Suspect]
     Active Substance: AFATINIB
     Indication: EGFR GENE MUTATION
     Route: 048

REACTIONS (2)
  - Toxicity to various agents [Unknown]
  - Skin toxicity [Unknown]

NARRATIVE: CASE EVENT DATE: 20150312
